FAERS Safety Report 14242812 (Version 1)
Quarter: 2017Q4

REPORT INFORMATION
  Report Type: Spontaneous
  Country: CA (occurrence: CA)
  Receive Date: 20171201
  Receipt Date: 20171201
  Transmission Date: 20180321
  Serious: Yes (Other)
  Sender: FDA-Public Use
  Company Number: CA-ROCHE-2031646

PATIENT
  Age: 60 Year
  Sex: Male

DRUGS (22)
  1. RITUXAN [Suspect]
     Active Substance: RITUXIMAB
     Indication: ACQUIRED EPIDERMOLYSIS BULLOSA
     Dosage: Q2WEEKS, THEN 6 MONTHS OFF
     Route: 042
     Dates: start: 20170419
  2. LEVEMIR [Concomitant]
     Active Substance: INSULIN DETEMIR
     Dosage: 30-35 UNITS 9 PM
     Route: 065
  3. ROSUVASTATIN. [Concomitant]
     Active Substance: ROSUVASTATIN
     Dosage: DAILY
     Route: 065
  4. APO-RISEDRONATE [Concomitant]
     Active Substance: RISEDRONATE SODIUM
  5. CELLCEPT [Concomitant]
     Active Substance: MYCOPHENOLATE MOFETIL\MYCOPHENOLATE MOFETIL HYDROCHLORIDE
     Dosage: 6 PILLS/DAY - 500MG EACH
     Route: 065
  6. LENOLTEC NO. 3 [Concomitant]
     Dosage: 300/15/30 MG
     Route: 065
  7. VITAMIN C [Concomitant]
     Active Substance: ASCORBIC ACID
  8. FERROUS FUMARATE [Concomitant]
     Active Substance: FERROUS FUMARATE
     Route: 065
  9. DORZOLAMIDE HYDROCHLORIDE AND TIMOLOL MALEATE [Concomitant]
     Active Substance: DORZOLAMIDE HYDROCHLORIDE\TIMOLOL MALEATE
     Dosage: DROPS
     Route: 065
  10. LUMIGAN [Concomitant]
     Active Substance: BIMATOPROST
     Dosage: DROPS
     Route: 065
  11. SULFASALAZINE. [Concomitant]
     Active Substance: SULFASALAZINE
     Route: 065
     Dates: start: 20171108
  12. VITAMIN E [Concomitant]
     Active Substance: .ALPHA.-TOCOPHEROL
     Route: 065
  13. FLUTICASONE. [Concomitant]
     Active Substance: FLUTICASONE
     Dosage: NASAL SPRAY
     Route: 065
  14. HYDROCHLOROTHIAZIDE. [Concomitant]
     Active Substance: HYDROCHLOROTHIAZIDE
     Dosage: BEDTIME
     Route: 065
  15. FISH OIL [Concomitant]
     Active Substance: FISH OIL
     Dosage: 3 X 11500MG PER DAY
     Route: 065
  16. ASPIRIN. [Concomitant]
     Active Substance: ASPIRIN
     Dosage: WHILE ON PREDNISONE
     Route: 065
     Dates: start: 20170724
  17. LYRICA [Concomitant]
     Active Substance: PREGABALIN
     Route: 065
     Dates: start: 20171110
  18. NOVORAPID [Concomitant]
     Active Substance: INSULIN ASPART
     Dosage: WITH MEALS - 10-25 UNITS
     Route: 065
  19. COVERSYL [Concomitant]
     Active Substance: PERINDOPRIL
     Dosage: BEDTIME
     Route: 065
     Dates: start: 20161223
  20. PANTOPRAZOLE SODIUM. [Concomitant]
     Active Substance: PANTOPRAZOLE SODIUM
     Route: 065
     Dates: start: 20170724
  21. MAGNESIUM CITRATE. [Concomitant]
     Active Substance: MAGNESIUM CITRATE
     Dosage: SUPP.
     Route: 065
  22. PREDNISONE. [Concomitant]
     Active Substance: PREDNISONE
     Route: 065
     Dates: start: 20170724

REACTIONS (1)
  - Blood glucose decreased [Recovered/Resolved]

NARRATIVE: CASE EVENT DATE: 20170523
